FAERS Safety Report 6211500-6 (Version None)
Quarter: 2009Q2

REPORT INFORMATION
  Report Type: 
  Country: None (occurrence: None)
  Receive Date: 20090528
  Receipt Date: 20090518
  Transmission Date: 20091009
  Serious: Yes (Life-Threatening, Hospitalization, Disabling, Other)
  Sender: FDA-Public Use
  Company Number: 2009AP002028

PATIENT
  Age: 64 Year
  Sex: Female

DRUGS (22)
  1. CLARITHROMYCIN [Suspect]
     Indication: RESPIRATORY TRACT INFECTION BACTERIAL
     Dosage: 500 MG; BID PO
     Route: 048
  2. ERGOCALCIFEROL [Concomitant]
  3. AMOXICILLIN [Concomitant]
  4. DARBEPOETIN ALFA (DARBEPOETIN ALFA) [Concomitant]
  5. CALCIUM CARBONATE (CALCIUM CARBONATE) [Concomitant]
  6. FOLIC ACID [Concomitant]
  7. ACETOMENAPHTHONE (ACETOMENAPHTHONE) [Concomitant]
  8. TOCOPHERYL ACETATE (TOCOPHERYL ACETATE) [Concomitant]
  9. ASCORBIC ACID [Concomitant]
  10. BIOTIN (BIOTIN) [Concomitant]
  11. CALCIUM PANTOTHENATE (CALCIUM PANTOTHENATE) [Concomitant]
  12. FOLIC ACID [Concomitant]
  13. INOSITOL (INOSITOL) [Concomitant]
  14. NICOTINAMIDE [Concomitant]
  15. PYRIDOXINE HYDROCHLORIDE (PYRIDOXINE HYDROCHLORIDE) [Concomitant]
  16. RIBOFLAVIN (RIBOFLAVIN) [Concomitant]
  17. THIAMINE HCL [Concomitant]
  18. LANSOPRAZOLE [Concomitant]
  19. FLUTICASONE PROPIONATE [Concomitant]
  20. SALMETEROL XINAFOATE (SALMETEROL XINAFOATE) [Concomitant]
  21. TIOTROPIUM BROMIDE (TIOTROPIUM BROMIDE) [Concomitant]
  22. ASPIRIN [Concomitant]

REACTIONS (3)
  - CARDIAC ARREST [None]
  - INCORRECT DOSE ADMINISTERED [None]
  - VENTRICULAR TACHYCARDIA [None]
